FAERS Safety Report 4511985-7 (Version None)
Quarter: 2004Q4

REPORT INFORMATION
  Report Type: 
  Country: None (occurrence: None)
  Receive Date: 20041129
  Receipt Date: 20040219
  Transmission Date: 20050328
  Serious: No
  Sender: FDA-Public Use
  Company Number: US-BRISTOL-MYERS SQUIBB COMPANY-12513305

PATIENT
  Age: 4 Decade
  Sex: Male

DRUGS (3)
  1. SUSTIVA [Suspect]
  2. VIDEX EC [Concomitant]
  3. TENOFOVIR [Concomitant]

REACTIONS (1)
  - ALOPECIA [None]
